FAERS Safety Report 9072502 (Version 1)
Quarter: 2013Q1

REPORT INFORMATION
  Report Type: Report from Study
  Country: US (occurrence: US)
  Receive Date: 20130129
  Receipt Date: 20130129
  Transmission Date: 20140127
  Serious: No
  Sender: FDA-Public Use
  Company Number: US-ABBOTT-12P-163-0940565-00

PATIENT
  Age: 38 Year
  Sex: Female

DRUGS (4)
  1. HUMIRA 40 MG/0.8 ML PEN [Suspect]
     Indication: CROHN^S DISEASE
     Dates: start: 20120429
  2. ASACOL [Concomitant]
     Indication: CROHN^S DISEASE
     Dosage: 300-400MG 1X EVERY MORNING
  3. LEXAPRO [Concomitant]
     Indication: ANXIETY
     Dosage: EVERY MORNING
  4. JOLESSA [Concomitant]
     Indication: CONTRACEPTION
     Dosage: 1 DAILY

REACTIONS (2)
  - Injection site pain [Recovered/Resolved]
  - Drug ineffective [Recovered/Resolved]
